FAERS Safety Report 10290189 (Version 1)
Quarter: 2014Q3

REPORT INFORMATION
  Report Type: Spontaneous
  Country: US (occurrence: None)
  Receive Date: 20140707
  Receipt Date: 20140707
  Transmission Date: 20150326
  Serious: Yes (Other)
  Sender: FDA-Public Use
  Company Number: None

PATIENT
  Age: 33 Year
  Sex: Male
  Weight: 49.9 kg

DRUGS (1)
  1. LAMICTAL [Suspect]
     Active Substance: LAMOTRIGINE
     Indication: EPILEPSY
     Dosage: 2 100 MG PILLS, ONCE DAILY, TAKEN BY MOUTH
     Route: 048

REACTIONS (4)
  - Ichthyosis [None]
  - Arthropod bite [None]
  - Application site reaction [None]
  - Rash [None]
